FAERS Safety Report 20890168 (Version 1)
Quarter: 2022Q2

REPORT INFORMATION
  Report Type: Report from Study
  Country: US (occurrence: US)
  Receive Date: 20220530
  Receipt Date: 20220530
  Transmission Date: 20220720
  Serious: Yes (Life-Threatening, Other)
  Sender: FDA-Public Use
  Company Number: US-BRISTOL-MYERS SQUIBB COMPANY-2022-042223

PATIENT
  Age: 79 Year
  Sex: Male
  Weight: 72.574 kg

DRUGS (1)
  1. POMALYST [Suspect]
     Active Substance: POMALIDOMIDE
     Indication: Plasma cell myeloma
     Dosage: FOR 21 DAYS 7 DAYS OFF
     Route: 048
     Dates: start: 20220423

REACTIONS (1)
  - COVID-19 [Unknown]
